FAERS Safety Report 15649776 (Version 2)
Quarter: 2019Q1

REPORT INFORMATION
  Report Type: Spontaneous
  Country: CH (occurrence: CH)
  Receive Date: 20181122
  Receipt Date: 20190218
  Transmission Date: 20190417
  Serious: Yes (Other)
  Sender: FDA-Public Use
  Company Number: PHHY2018CH159566

PATIENT
  Age: 5 Year

DRUGS (4)
  1. GLIVEC [Suspect]
     Active Substance: IMATINIB MESYLATE
     Indication: ACUTE LYMPHOCYTIC LEUKAEMIA
     Dosage: UNK
     Route: 065
     Dates: end: 20181003
  2. ZOVIRAX [Concomitant]
     Active Substance: ACYCLOVIR
     Indication: INFECTION PROPHYLAXIS
     Route: 065
  3. NOPIL [Concomitant]
     Active Substance: SULFAMETHOXAZOLE\TRIMETHOPRIM
     Indication: INFECTION PROPHYLAXIS
     Route: 065
  4. GLIVEC [Suspect]
     Active Substance: IMATINIB MESYLATE
     Dosage: UNK
     Route: 065
     Dates: start: 20181016

REACTIONS (14)
  - Oropharyngeal pain [Unknown]
  - Product use issue [Unknown]
  - Nausea [Unknown]
  - Cellulitis pharyngeal [Recovering/Resolving]
  - Cachexia [Recovering/Resolving]
  - Pain [Recovering/Resolving]
  - Posterior reversible encephalopathy syndrome [Recovering/Resolving]
  - Capillary disorder [Recovering/Resolving]
  - Oesophagitis [Recovering/Resolving]
  - Vomiting [Unknown]
  - Glomerulonephritis [Recovering/Resolving]
  - Pancreatitis [Recovering/Resolving]
  - Delirium [Recovering/Resolving]
  - Haemophagocytic lymphohistiocytosis [Recovering/Resolving]

NARRATIVE: CASE EVENT DATE: 201802
